FAERS Safety Report 10074938 (Version 2)
Quarter: 2014Q2

REPORT INFORMATION
  Report Type: Spontaneous
  Country: DE (occurrence: DE)
  Receive Date: 20140414
  Receipt Date: 20140507
  Transmission Date: 20141212
  Serious: Yes (Other)
  Sender: FDA-Public Use
  Company Number: DE-ASTELLAS-2014EU003929

PATIENT
  Age: 70 Year
  Sex: Male

DRUGS (2)
  1. ENZALUTAMIDE [Suspect]
     Indication: PROSTATE CANCER
     Route: 048
     Dates: start: 20140328, end: 20140330
  2. ENZALUTAMIDE [Suspect]
     Route: 048
     Dates: start: 20140401

REACTIONS (4)
  - Deafness [Recovered/Resolved with Sequelae]
  - Restless legs syndrome [Recovering/Resolving]
  - Sleep disorder [Not Recovered/Not Resolved]
  - Gynaecomastia [Unknown]
